FAERS Safety Report 6159883-X (Version None)
Quarter: 2009Q2

REPORT INFORMATION
  Report Type: 
  Country: None (occurrence: None)
  Receive Date: 20090420
  Receipt Date: 20090415
  Transmission Date: 20091009
  Serious: Yes (Death, Life-Threatening, Other)
  Sender: FDA-Public Use
  Company Number: PHHY2009JP04174

PATIENT
  Sex: Male

DRUGS (4)
  1. ZOLEDRONIC ACID [Suspect]
     Indication: METASTASES TO BONE
     Dosage: 4 MG DILUTED TO 100 ML
     Route: 042
     Dates: start: 20071204, end: 20080722
  2. OXYCONTIN [Concomitant]
     Dosage: 10MG
     Route: 048
     Dates: start: 20071204, end: 20080728
  3. PURSENNID [Concomitant]
     Dosage: 36MG
     Route: 048
     Dates: start: 20080128, end: 20080728
  4. TARCEVA [Concomitant]
     Dosage: 150MG
     Route: 048
     Dates: start: 20080526, end: 20080608

REACTIONS (3)
  - HYPOCALCAEMIA [None]
  - METASTASES TO ABDOMINAL CAVITY [None]
  - RENAL FAILURE ACUTE [None]
